FAERS Safety Report 8955676 (Version 2)
Quarter: 2013Q1

REPORT INFORMATION
  Report Type: Spontaneous
  Country: US (occurrence: US)
  Receive Date: 20121210
  Receipt Date: 20130205
  Transmission Date: 20140127
  Serious: Yes (Hospitalization)
  Sender: FDA-Public Use
  Company Number: US-US-EMD SERONO, INC.-7179982

PATIENT
  Age: 43 Year
  Sex: Female

DRUGS (4)
  1. REBIF [Suspect]
     Indication: MULTIPLE SCLEROSIS
     Dates: start: 20120523
  2. PROVIGIL [Suspect]
     Indication: FATIGUE
     Dates: start: 201208, end: 20121001
  3. PROVIGIL [Suspect]
     Dates: start: 20121001, end: 20121112
  4. PROVIGIL [Suspect]
     Dates: start: 20121112, end: 20121113

REACTIONS (2)
  - Psychotic disorder [Recovered/Resolved]
  - Depression [Unknown]
